FAERS Safety Report 15439897 (Version 1)
Quarter: 2018Q3

REPORT INFORMATION
  Report Type: Spontaneous
  Country: ES (occurrence: ES)
  Receive Date: 20180928
  Receipt Date: 20180928
  Transmission Date: 20181010
  Serious: Yes (Hospitalization)
  Sender: FDA-Public Use
  Company Number: ES-ASTRAZENECA-2018SF24431

PATIENT
  Age: 55 Year
  Sex: Female
  Weight: 79 kg

DRUGS (14)
  1. PREDNISONE. [Suspect]
     Active Substance: PREDNISONE
     Indication: ASTHMA
     Dosage: 40 MG40.0MG UNKNOWN
     Route: 048
     Dates: start: 20180502, end: 20180506
  2. DOXYCYCLINE. [Concomitant]
     Active Substance: DOXYCYCLINE
     Dosage: 100 MG100.0MG UNKNOWN
     Route: 048
     Dates: start: 20180419, end: 20180516
  3. BETAHISTINE [Concomitant]
     Active Substance: BETAHISTINE
     Dosage: 24 MG24.0MG UNKNOWN
     Route: 048
     Dates: start: 20170331
  4. PREDNISONE. [Suspect]
     Active Substance: PREDNISONE
     Indication: ASTHMA
     Dosage: 30 MG30.0MG UNKNOWN
     Route: 048
     Dates: start: 20180427, end: 20180430
  5. BUDESONIDE/FORMOTEROL FUMARATE [Suspect]
     Active Substance: BUDESONIDE\FORMOTEROL FUMARATE
     Indication: ASTHMA
     Dosage: 1280 UG, 320 UG/INHALATION, UNKNOWN UNKNOWN
     Route: 055
     Dates: start: 20161013
  6. PREDNISONE. [Suspect]
     Active Substance: PREDNISONE
     Indication: ASTHMA
     Dosage: 30 MG30.0MG UNKNOWN
     Route: 048
     Dates: start: 20180523, end: 20180606
  7. GLYCOPYRRONIUM BROMIDE [Concomitant]
     Active Substance: GLYCOPYRRONIUM
     Dosage: 44 UG44.0UG/INHAL UNKNOWN
     Route: 055
     Dates: start: 20171226
  8. SALBUTAMOL SULFATE [Suspect]
     Active Substance: ALBUTEROL SULFATE
     Indication: ASTHMA
     Dosage: UNK
     Route: 065
     Dates: start: 1980
  9. ENALAPRIL [Concomitant]
     Active Substance: ENALAPRIL
     Dosage: 5 MG5.0MG UNKNOWN
     Route: 048
     Dates: start: 20150608
  10. PREDNISONE. [Suspect]
     Active Substance: PREDNISONE
     Indication: ASTHMA
     Dosage: 30 MG30.0MG UNKNOWN
     Route: 048
     Dates: start: 20171226, end: 20180101
  11. PREDNISONE. [Suspect]
     Active Substance: PREDNISONE
     Indication: ASTHMA
     Dosage: 35 MG35.0MG UNKNOWN
     Route: 048
     Dates: start: 20180507, end: 20180522
  12. TORASEMIDE [Concomitant]
     Active Substance: TORSEMIDE
     Dosage: 5 MG5.0MG UNKNOWN
     Route: 048
     Dates: start: 20150608
  13. COLECALCIFEROL [Concomitant]
     Active Substance: CHOLECALCIFEROL
     Dosage: UNK
     Route: 048
     Dates: start: 20170315
  14. EUTIROX [Concomitant]
     Active Substance: LEVOTHYROXINE SODIUM
     Dosage: 50 MG50.0MG UNKNOWN
     Route: 048
     Dates: start: 20170424

REACTIONS (1)
  - Asthma [Recovering/Resolving]

NARRATIVE: CASE EVENT DATE: 20180430
